FAERS Safety Report 23139415 (Version 2)
Quarter: 2023Q4

REPORT INFORMATION
  Report Type: Report from Study
  Country: US (occurrence: None)
  Receive Date: 20231102
  Receipt Date: 20231110
  Transmission Date: 20240110
  Serious: Yes (Other)
  Sender: FDA-Public Use
  Company Number: US-ROCHE-3446096

PATIENT
  Age: 56 Year
  Sex: Male
  Weight: 108 kg

DRUGS (2)
  1. ATEZOLIZUMAB [Suspect]
     Active Substance: ATEZOLIZUMAB
     Indication: Bladder transitional cell carcinoma
     Dosage: LAST ADMINISTERED DATE: 03/FEB/2023?CYCLE = 21 DAYS (MAX = 9 CYCLES)
     Route: 041
     Dates: start: 20200113
  2. CISPLATIN [Suspect]
     Active Substance: CISPLATIN
     Indication: Bladder transitional cell carcinoma
     Dosage: LAST ADMINISTERED DATE 10/FEB/2020 ?RECEIVED 80 MG ON 2/3 AND 2/10 BUT WAS DOSE REDUCED ON 2/17 DUE
     Route: 042
     Dates: start: 20200113, end: 20200217

REACTIONS (3)
  - Neutropenia [Recovering/Resolving]
  - Leukopenia [Recovering/Resolving]
  - Myalgia [Recovering/Resolving]

NARRATIVE: CASE EVENT DATE: 20200214
